FAERS Safety Report 14935695 (Version 3)
Quarter: 2019Q4

REPORT INFORMATION
  Report Type: Spontaneous
  Country: US (occurrence: US)
  Receive Date: 20180524
  Receipt Date: 20191108
  Transmission Date: 20200122
  Serious: Yes (Other)
  Sender: FDA-Public Use
  Company Number: US-ELI_LILLY_AND_COMPANY-US201805008646

PATIENT
  Age: 51 Year
  Sex: Male

DRUGS (3)
  1. CIALIS [Suspect]
     Active Substance: TADALAFIL
     Indication: ERECTILE DYSFUNCTION
     Dosage: UNK, UNKNOWN
     Route: 065
     Dates: start: 20090212, end: 20150526
  2. AMLODIPIN [AMLODIPINE BESILATE] [Concomitant]
     Indication: BLOOD PRESSURE ABNORMAL
     Dosage: UNK UNK, UNKNOWN
     Route: 065
     Dates: start: 2010
  3. LEVITRA [Concomitant]
     Active Substance: VARDENAFIL HYDROCHLORIDE
     Indication: ERECTILE DYSFUNCTION
     Dosage: 20 MG, WEEKLY (1/W)
     Route: 065
     Dates: start: 20050105, end: 20100510

REACTIONS (6)
  - Malignant melanoma [Unknown]
  - Actinic keratosis [Recovered/Resolved]
  - Squamous cell carcinoma of skin [Unknown]
  - Squamous cell carcinoma [Recovered/Resolved]
  - Actinic keratosis [Unknown]
  - Basal cell carcinoma [Unknown]

NARRATIVE: CASE EVENT DATE: 20100611
